FAERS Safety Report 13747079 (Version 2)
Quarter: 2017Q3

REPORT INFORMATION
  Report Type: Report from Study
  Country: DE (occurrence: DE)
  Receive Date: 20170712
  Receipt Date: 20170802
  Transmission Date: 20171127
  Serious: Yes (Other)
  Sender: FDA-Public Use
  Company Number: DE-CELGENEUS-DEU-20170610104

PATIENT
  Age: 57 Year
  Sex: Female

DRUGS (11)
  1. DIPIPERON [Concomitant]
     Active Substance: PIPAMPERONE
     Indication: BIPOLAR DISORDER
     Route: 065
     Dates: start: 2010
  2. ABRAXANE [Suspect]
     Active Substance: PACLITAXEL
     Indication: BREAST CANCER
     Dosage: CUMULATIVE DOSE 3118.5 MG
     Route: 065
     Dates: start: 20161220
  3. ARIPIPRAZOL [Concomitant]
     Active Substance: ARIPIPRAZOLE
     Indication: BIPOLAR DISORDER
     Route: 065
     Dates: start: 2010
  4. SALBUTAMOL [Concomitant]
     Active Substance: ALBUTEROL
     Indication: ASTHMA
     Route: 065
     Dates: start: 2006
  5. QUETIAPIN [Concomitant]
     Active Substance: QUETIAPINE
     Indication: BIPOLAR DISORDER
     Route: 065
     Dates: start: 2011, end: 2016
  6. QUETIAPIN [Concomitant]
     Active Substance: QUETIAPINE
     Route: 065
     Dates: start: 2016
  7. VENLAFAXIN [Concomitant]
     Active Substance: VENLAFAXINE HYDROCHLORIDE
     Indication: BIPOLAR DISORDER
     Route: 065
     Dates: start: 2010
  8. OXYCODON [Concomitant]
     Active Substance: OXYCODONE
     Indication: PAIN
     Route: 065
     Dates: start: 2011
  9. RAMILICH [Concomitant]
     Active Substance: RAMIPRIL
     Indication: HYPERTENSION
     Route: 065
     Dates: start: 2016
  10. FOSTER [Concomitant]
     Active Substance: BECLOMETHASONE\FORMOTEROL
     Indication: ASTHMA
     Route: 065
     Dates: start: 2015
  11. FERRO-SANOL DUODENAL [Concomitant]
     Active Substance: FERROUS GLYCINE SULFATE
     Indication: IRON DEFICIENCY
     Route: 065
     Dates: start: 2016

REACTIONS (1)
  - Palmar-plantar erythrodysaesthesia syndrome [Recovered/Resolved]

NARRATIVE: CASE EVENT DATE: 20170330
